FAERS Safety Report 7769538-3 (Version None)
Quarter: 2011Q3

REPORT INFORMATION
  Report Type: 
  Country: None (occurrence: None)
  Receive Date: 20110922
  Receipt Date: 20110118
  Transmission Date: 20111222
  Serious: No
  Sender: FDA-Public Use
  Company Number: US-ASTRAZENECA-2011SE03132

PATIENT
  Age: 59 Year
  Sex: Female

DRUGS (8)
  1. SEROQUEL XR [Suspect]
     Indication: SLEEP DISORDER
     Route: 048
     Dates: start: 20100101
  2. PREMPRO [Concomitant]
  3. PRAVASTATIN [Concomitant]
  4. SEROQUEL XR [Suspect]
     Route: 048
  5. SEROQUEL XR [Suspect]
     Route: 048
  6. CARVEDILOL [Concomitant]
  7. ATIVAN [Concomitant]
  8. SEROQUEL XR [Suspect]
     Indication: ANXIETY
     Route: 048
     Dates: start: 20100101

REACTIONS (6)
  - INCORRECT DOSE ADMINISTERED [None]
  - ANXIETY [None]
  - WEIGHT INCREASED [None]
  - VOMITING [None]
  - THERAPEUTIC RESPONSE UNEXPECTED [None]
  - NO ADVERSE EVENT [None]
